FAERS Safety Report 24669541 (Version 2)
Quarter: 2024Q4

REPORT INFORMATION
  Report Type: Report from Study
  Country: US (occurrence: US)
  Receive Date: 20241127
  Receipt Date: 20241216
  Transmission Date: 20250115
  Serious: Yes (Other)
  Sender: UCB
  Company Number: US-UCBSA-2024060760

PATIENT
  Sex: Male

DRUGS (1)
  1. LEVETIRACETAM [Suspect]
     Active Substance: LEVETIRACETAM
     Indication: Seizure
     Dosage: 500 MILLIGRAM, 2X/DAY (BID)
     Dates: start: 202011

REACTIONS (3)
  - Neoplasm [Not Recovered/Not Resolved]
  - Speech disorder [Not Recovered/Not Resolved]
  - Inappropriate schedule of product administration [Unknown]
